FAERS Safety Report 16721644 (Version 2)
Quarter: 2019Q3

REPORT INFORMATION
  Report Type: Report from Study
  Country: US (occurrence: US)
  Receive Date: 20190820
  Receipt Date: 20190912
  Transmission Date: 20191005
  Serious: Yes (Hospitalization)
  Sender: FDA-Public Use
  Company Number: US-ADAMAS PHARMA, LLC-2019ADA01480

PATIENT
  Sex: Female

DRUGS (13)
  1. GOCOVRI [Suspect]
     Active Substance: AMANTADINE
     Dosage: 137 MG, 1X/DAY AT BEDTIME
     Route: 048
     Dates: start: 20190809
  2. VITAMIN D3 [Concomitant]
     Active Substance: CHOLECALCIFEROL
  3. TYLENOL WITH CODEINE [Concomitant]
     Active Substance: ACETAMINOPHEN\CODEINE PHOSPHATE
  4. RYTARY [Concomitant]
     Active Substance: CARBIDOPA\LEVODOPA
  5. LEVOTHYROXINE. [Concomitant]
     Active Substance: LEVOTHYROXINE
  6. MYRBETRIQ [Concomitant]
     Active Substance: MIRABEGRON
  7. DOXEPIN HYDROCHLORIDE. [Concomitant]
     Active Substance: DOXEPIN HYDROCHLORIDE
  8. PRAMIPEXOLE. [Concomitant]
     Active Substance: PRAMIPEXOLE
  9. PRAVASTATIN. [Concomitant]
     Active Substance: PRAVASTATIN
  10. GOCOVRI [Suspect]
     Active Substance: AMANTADINE
     Indication: PRODUCT USED FOR UNKNOWN INDICATION
     Dosage: 137 MG, 1X/DAY AT BEDTIME
     Route: 048
     Dates: start: 20180323, end: 201907
  11. FLUDROCORTISONE [Concomitant]
     Active Substance: FLUDROCORTISONE
  12. CARBIDOPA/LEVODOPA ER [Concomitant]
     Active Substance: CARBIDOPA\LEVODOPA
  13. METHENAMINE MANDELATE. [Concomitant]
     Active Substance: METHENAMINE MANDELATE

REACTIONS (8)
  - Urinary tract infection [Unknown]
  - Fall [Recovered/Resolved]
  - Product dose omission [Unknown]
  - Seizure like phenomena [Unknown]
  - Dysphagia [Not Recovered/Not Resolved]
  - Dehydration [Recovered/Resolved]
  - Asthenia [Unknown]
  - Cervical vertebral fracture [Unknown]

NARRATIVE: CASE EVENT DATE: 2019
